FAERS Safety Report 10615069 (Version 4)
Quarter: 2015Q1

REPORT INFORMATION
  Report Type: Spontaneous
  Country: US (occurrence: US)
  Receive Date: 20141201
  Receipt Date: 20150108
  Transmission Date: 20150720
  Serious: Yes (Hospitalization, Other)
  Sender: FDA-Public Use
  Company Number: PHEH2014US023882

PATIENT
  Age: 61 Year
  Sex: Male
  Weight: 77.55 kg

DRUGS (9)
  1. ZOMETA [Suspect]
     Active Substance: ZOLEDRONIC ACID
     Indication: PLASMA CELL MYELOMA
     Dosage: 4 MG, QMO
     Route: 042
     Dates: start: 200601, end: 201202
  2. ADVAIR HFA [Suspect]
     Active Substance: FLUTICASONE PROPIONATE\SALMETEROL XINAFOATE
     Indication: PRODUCT USED FOR UNKNOWN INDICATION
     Route: 065
  3. VELCADE [Suspect]
     Active Substance: BORTEZOMIB
     Indication: PRODUCT USED FOR UNKNOWN INDICATION
     Route: 065
  4. REVLIMID [Concomitant]
     Active Substance: LENALIDOMIDE
     Indication: PRODUCT USED FOR UNKNOWN INDICATION
     Route: 065
  5. PEN-G [Suspect]
     Active Substance: PENICILLIN G
     Indication: PRODUCT USED FOR UNKNOWN INDICATION
     Route: 048
  6. ADRIAMYCIN [Concomitant]
     Active Substance: DOXORUBICIN HYDROCHLORIDE
     Indication: PRODUCT USED FOR UNKNOWN INDICATION
     Route: 065
  7. DEXAMETASON [Concomitant]
     Active Substance: DEXAMETHASONE
     Indication: PRODUCT USED FOR UNKNOWN INDICATION
     Route: 065
  8. AREDIA [Suspect]
     Active Substance: PAMIDRONATE DISODIUM
     Indication: PRODUCT USED FOR UNKNOWN INDICATION
     Route: 042
  9. VINCRISTINE [Concomitant]
     Active Substance: VINCRISTINE
     Indication: PRODUCT USED FOR UNKNOWN INDICATION
     Route: 065

REACTIONS (199)
  - Abscess jaw [Unknown]
  - Gastric haemorrhage [Unknown]
  - Vertigo [Unknown]
  - Osteolysis [Unknown]
  - Upper-airway cough syndrome [Unknown]
  - Aortic valve disease [Unknown]
  - Hypoxia [Unknown]
  - Stomatitis [Unknown]
  - Serum sickness-like reaction [Recovered/Resolved]
  - Intervertebral disc protrusion [Unknown]
  - Hypercholesterolaemia [Unknown]
  - Nasal turbinate hypertrophy [Unknown]
  - Faeces discoloured [Unknown]
  - Asthenia [Unknown]
  - Peripheral swelling [Unknown]
  - Constipation [Unknown]
  - Muscle tightness [Unknown]
  - Proteinuria [Unknown]
  - Pruritus [Unknown]
  - Sinus disorder [Unknown]
  - Cerebral small vessel ischaemic disease [Unknown]
  - Depression [Unknown]
  - Upper respiratory tract infection [Unknown]
  - Paraesthesia oral [Unknown]
  - Pneumonia [Unknown]
  - Spinal osteoarthritis [Unknown]
  - Sleep apnoea syndrome [Unknown]
  - Ear pain [Unknown]
  - Osteomyelitis [Unknown]
  - Lip ulceration [Unknown]
  - Anhedonia [Unknown]
  - Deformity [Unknown]
  - Intervertebral disc degeneration [Unknown]
  - Tonsillitis [Unknown]
  - Chronic kidney disease [Unknown]
  - Vertebral osteophyte [Unknown]
  - Lymphadenopathy mediastinal [Unknown]
  - Deafness bilateral [Unknown]
  - Cardiac failure congestive [Unknown]
  - Headache [Unknown]
  - Musculoskeletal discomfort [Unknown]
  - Bone pain [Unknown]
  - Thirst [Unknown]
  - Flushing [Unknown]
  - Erythema [Unknown]
  - Weight decreased [Unknown]
  - Temperature intolerance [Unknown]
  - Dysuria [Unknown]
  - Muscle spasms [Unknown]
  - Arthritis [Unknown]
  - Parotid gland enlargement [Unknown]
  - Hyperlipidaemia [Unknown]
  - Intermittent claudication [Unknown]
  - Peripheral coldness [Unknown]
  - Intervertebral disc disorder [Unknown]
  - Vertebral foraminal stenosis [Unknown]
  - Pollakiuria [Unknown]
  - Mucosal ulceration [Unknown]
  - Injury [Unknown]
  - Bursa disorder [Unknown]
  - Secretion discharge [Unknown]
  - Pulmonary fibrosis [Unknown]
  - Peripheral vascular disorder [Unknown]
  - Syncope [Unknown]
  - Herpes zoster [Unknown]
  - Hypoaesthesia [Unknown]
  - Pleural effusion [Unknown]
  - Acute kidney injury [Unknown]
  - Crohn^s disease [Unknown]
  - Dyspnoea [Unknown]
  - Swelling face [Unknown]
  - Oral disorder [Unknown]
  - Tremor [Unknown]
  - Chronic obstructive pulmonary disease [Unknown]
  - Urinary retention [Unknown]
  - Epulis [Unknown]
  - Gastroenteritis [Unknown]
  - Rhonchi [Unknown]
  - Mitral valve disease [Unknown]
  - Neoplasm [Unknown]
  - Metastases to spine [Unknown]
  - Cancer pain [Unknown]
  - Respiratory tract congestion [Unknown]
  - Bronchial wall thickening [Unknown]
  - Rhinitis [Unknown]
  - Viral infection [Unknown]
  - Melaena [Unknown]
  - Paraesthesia [Unknown]
  - Back pain [Unknown]
  - Facial pain [Unknown]
  - Gait disturbance [Unknown]
  - Trigeminal neuralgia [Unknown]
  - Hypertension [Unknown]
  - Hearing impaired [Unknown]
  - Facet joint syndrome [Unknown]
  - Arteriosclerosis [Unknown]
  - Vertebral lesion [Unknown]
  - Skin disorder [Unknown]
  - Visual impairment [Unknown]
  - Stress fracture [Unknown]
  - Hiatus hernia [Unknown]
  - Tricuspid valve incompetence [Unknown]
  - Bronchiectasis [Unknown]
  - Hyperglycaemia [Unknown]
  - Diabetes mellitus [Unknown]
  - Peptic ulcer [Unknown]
  - Mental status changes [Unknown]
  - Bursitis [Unknown]
  - Microcytic anaemia [Unknown]
  - Eye swelling [Unknown]
  - Claustrophobia [Unknown]
  - Rhinitis allergic [Unknown]
  - Lung infiltration [Unknown]
  - Jaw disorder [Unknown]
  - Suicidal ideation [Unknown]
  - Seborrhoeic keratosis [Unknown]
  - Oral herpes [Unknown]
  - Speech disorder [Unknown]
  - Sputum purulent [Recovered/Resolved]
  - Bone marrow failure [Unknown]
  - Tongue injury [Unknown]
  - Anxiety [Unknown]
  - Decreased appetite [Unknown]
  - Pyrexia [Unknown]
  - Feeling abnormal [Unknown]
  - Confusional state [Unknown]
  - Osteonecrosis of jaw [Not Recovered/Not Resolved]
  - Exposed bone in jaw [Unknown]
  - Hypoaesthesia oral [Unknown]
  - Insomnia [Unknown]
  - Gastrooesophageal reflux disease [Unknown]
  - Chronic gastritis [Unknown]
  - Foot fracture [Unknown]
  - Left ventricular hypertrophy [Unknown]
  - Left ventricular dysfunction [Unknown]
  - Lung hyperinflation [Unknown]
  - Neuropathy peripheral [Unknown]
  - Spinal cord injury [Unknown]
  - Osteopenia [Unknown]
  - Jaw fracture [Unknown]
  - Restless legs syndrome [Unknown]
  - Exostosis [Unknown]
  - Orthostatic hypotension [Unknown]
  - Loss of consciousness [Unknown]
  - Ulcer [Not Recovered/Not Resolved]
  - Pain in jaw [Not Recovered/Not Resolved]
  - Blindness [Unknown]
  - Haematemesis [Unknown]
  - Deafness neurosensory [Unknown]
  - Pneumonia viral [Unknown]
  - Myocardial infarction [Unknown]
  - Cachexia [Unknown]
  - Chest pain [Unknown]
  - Fatigue [Unknown]
  - Productive cough [Not Recovered/Not Resolved]
  - Lethargy [Unknown]
  - Bronchitis [Unknown]
  - Bone swelling [Unknown]
  - Lumbar spinal stenosis [Unknown]
  - Gastric ulcer [Unknown]
  - Mouth ulceration [Unknown]
  - Large intestine polyp [Unknown]
  - Eye pain [Unknown]
  - Chronic sinusitis [Unknown]
  - Cataract [Unknown]
  - Contusion [Unknown]
  - Hepatic cyst [Unknown]
  - Spondylolisthesis [Unknown]
  - Drooling [Unknown]
  - Wheezing [Unknown]
  - Cough [Unknown]
  - Arthralgia [Unknown]
  - Nasal congestion [Unknown]
  - Sinus tachycardia [Unknown]
  - Somnolence [Unknown]
  - Dysgeusia [Unknown]
  - Agitation [Unknown]
  - Nervous system disorder [Unknown]
  - Intervertebral disc space narrowing [Unknown]
  - Barrett^s oesophagus [Unknown]
  - Haemorrhoids [Unknown]
  - Nervousness [Unknown]
  - Hallucination [Unknown]
  - Dyslipidaemia [Unknown]
  - Sinus congestion [Unknown]
  - Altered state of consciousness [Unknown]
  - Skin lesion [Unknown]
  - Fall [Unknown]
  - Fracture malunion [Unknown]
  - Leukocytosis [Unknown]
  - Haematuria [Unknown]
  - Dysthymic disorder [Unknown]
  - Dyspepsia [Unknown]
  - Dysphonia [Unknown]
  - Blister [Unknown]
  - Myopia [Unknown]
  - Pain in extremity [Unknown]
  - Iron deficiency [Unknown]
  - Regurgitation [Unknown]

NARRATIVE: CASE EVENT DATE: 201205
